FAERS Safety Report 4851638-9 (Version None)
Quarter: 2005Q4

REPORT INFORMATION
  Report Type: 
  Country: None (occurrence: None)
  Receive Date: 20051212
  Receipt Date: 20051116
  Transmission Date: 20060501
  Serious: Yes (Hospitalization, Disabling)
  Sender: FDA-Public Use
  Company Number: KW-MERCK-0511USA03194

PATIENT
  Age: 52 Year
  Sex: Male
  Weight: 95 kg

DRUGS (3)
  1. VIOXX [Suspect]
     Indication: BACK PAIN
     Route: 048
     Dates: start: 20020707, end: 20030511
  2. ASPIRIN [Concomitant]
     Route: 065
  3. [THERAPY UNSPECIFIED] [Concomitant]
     Route: 065

REACTIONS (5)
  - ACUTE MYOCARDIAL INFARCTION [None]
  - CARDIAC ARREST [None]
  - CORONARY ARTERY DISEASE [None]
  - CORONARY ARTERY STENOSIS [None]
  - OVERDOSE [None]
